FAERS Safety Report 5110494-4 (Version None)
Quarter: 2006Q3

REPORT INFORMATION
  Report Type: 
  Country: None (occurrence: None)
  Receive Date: 20060921
  Receipt Date: 20060810
  Transmission Date: 20061208
  Serious: Yes (Disabling, Other)
  Sender: FDA-Public Use
  Company Number: 2006UW16237

PATIENT
  Age: 200 Month
  Sex: Female

DRUGS (9)
  1. PULMICORT [Suspect]
     Indication: ASTHMA
     Route: 055
     Dates: start: 19941027, end: 19990827
  2. PULMICORT [Suspect]
     Dosage: CAMPCS OBSERVATIONAL STUDY
     Route: 055
     Dates: start: 19990828, end: 20040204
  3. PULMICORT [Suspect]
     Dosage: CAMPCS/2
     Route: 055
     Dates: start: 20041221
  4. ELOCON [Concomitant]
  5. ELIDEL [Concomitant]
  6. TRIAMCINOLONE [Concomitant]
  7. ALBUTEROL [Concomitant]
     Route: 055
     Dates: start: 19990801, end: 20030801
  8. PREDNISONE [Concomitant]
     Indication: ASTHMA
     Dates: start: 20010220
  9. TOPICAL STEROIDS [Concomitant]
     Dates: start: 19961029

REACTIONS (1)
  - CATARACT [None]
